FAERS Safety Report 8055004-7 (Version None)
Quarter: 2012Q1

REPORT INFORMATION
  Report Type: 
  Country: None (occurrence: None)
  Receive Date: 20120119
  Receipt Date: 20120116
  Transmission Date: 20120608
  Serious: Yes (Other)
  Sender: FDA-Public Use
  Company Number: US-PFIZER INC-2012014538

PATIENT

DRUGS (1)
  1. CHANTIX [Suspect]

REACTIONS (4)
  - CRYING [None]
  - HYPERTENSION [None]
  - DIZZINESS [None]
  - CARDIAC DISORDER [None]
